FAERS Safety Report 19680443 (Version 1)
Quarter: 2021Q3

REPORT INFORMATION
  Report Type: Spontaneous
  Country: US (occurrence: US)
  Receive Date: 20210810
  Receipt Date: 20210810
  Transmission Date: 20211014
  Serious: No
  Sender: FDA-Public Use
  Company Number: US-CELGENEUS-USA-20210801220

PATIENT
  Age: 66 Year
  Sex: Female
  Weight: 104 kg

DRUGS (5)
  1. POMALYST [Suspect]
     Active Substance: POMALIDOMIDE
     Dosage: 4 MILLIGRAM
     Route: 048
     Dates: start: 20210723, end: 20210725
  2. POMALYST [Suspect]
     Active Substance: POMALIDOMIDE
     Indication: PLASMA CELL MYELOMA
     Dosage: 2 MILLIGRAM
     Route: 048
     Dates: start: 201508
  3. POMALYST [Suspect]
     Active Substance: POMALIDOMIDE
     Dosage: 4 MILLIGRAM
     Route: 048
     Dates: start: 202104
  4. POMALYST [Suspect]
     Active Substance: POMALIDOMIDE
     Dosage: 4?3MG
     Route: 048
     Dates: start: 201901
  5. POMALYST [Suspect]
     Active Substance: POMALIDOMIDE
     Dosage: 2?1 MG
     Route: 048
     Dates: start: 201904

REACTIONS (1)
  - Diarrhoea [Unknown]

NARRATIVE: CASE EVENT DATE: 20210724
